FAERS Safety Report 23338414 (Version 3)
Quarter: 2024Q4

REPORT INFORMATION
  Report Type: Spontaneous
  Country: CN (occurrence: CN)
  Receive Date: 20231226
  Receipt Date: 20241018
  Transmission Date: 20250114
  Serious: No
  Sender: ROCHE
  Company Number: CN-BoehringerIngelheim-2023-BI-277500

PATIENT
  Age: 52 Year
  Sex: Male
  Weight: 72.5 kg

DRUGS (1)
  1. ALTEPLASE [Suspect]
     Active Substance: ALTEPLASE
     Indication: Carotid artery occlusion
     Route: 042
     Dates: start: 20231102, end: 20231102

REACTIONS (2)
  - Puncture site haemorrhage [Recovering/Resolving]
  - Drug intolerance [Unknown]
